FAERS Safety Report 4816274-9 (Version None)
Quarter: 2005Q4

REPORT INFORMATION
  Report Type: 
  Country: None (occurrence: None)
  Receive Date: 20051028
  Receipt Date: 20051014
  Transmission Date: 20060501
  Serious: Yes (Disabling, Other)
  Sender: FDA-Public Use
  Company Number: PHHO2004JP17069

PATIENT
  Age: 79 Year
  Sex: Male
  Weight: 51.0297 kg

DRUGS (4)
  1. VISUDYNE [Suspect]
     Indication: MACULAR DEGENERATION
     Dosage: 6 MG/M^2 ONCE IV
     Route: 042
     Dates: start: 20040803, end: 20040803
  2. AMLODIPINE BESYLATE [Concomitant]
  3. ONON [Concomitant]
  4. THEOLONG [Concomitant]

REACTIONS (3)
  - DETACHMENT OF RETINAL PIGMENT EPITHELIUM [None]
  - RETINAL HAEMORRHAGE [None]
  - VISUAL ACUITY REDUCED [None]
